FAERS Safety Report 6248059-3 (Version None)
Quarter: 2009Q2

REPORT INFORMATION
  Report Type: 
  Country: None (occurrence: None)
  Receive Date: 20090628
  Receipt Date: 20090625
  Transmission Date: 20091009
  Serious: Yes (Life-Threatening, Hospitalization)
  Sender: FDA-Public Use
  Company Number: ZA-B.I. PHARMACEUTICALS,INC./RIDGEFIELD-2009-ZA-00062ZA

PATIENT
  Sex: Female

DRUGS (1)
  1. MOBIC 15MG/1.5ML [Suspect]
     Dosage: 15 MG STAT
     Route: 030
     Dates: start: 20090624, end: 20090624

REACTIONS (1)
  - ANAPHYLACTIC REACTION [None]
